FAERS Safety Report 5011730-5 (Version None)
Quarter: 2006Q2

REPORT INFORMATION
  Report Type: 
  Country: None (occurrence: None)
  Receive Date: 20060526
  Receipt Date: 20060518
  Transmission Date: 20061013
  Serious: Yes (Other)
  Sender: FDA-Public Use
  Company Number: DE-NOVOPROD-253429

PATIENT
  Sex: Female
  Weight: 16 kg

DRUGS (1)
  1. NORDITROPIN SIMPLEXX [Suspect]
     Indication: GROWTH HORMONE DEFICIENCY
     Dosage: .5 MG, QD
     Route: 058
     Dates: start: 20051101, end: 20060428

REACTIONS (1)
  - BLOOD CREATINE PHOSPHOKINASE INCREASED [None]
